FAERS Safety Report 6688728-4 (Version None)
Quarter: 2010Q2

REPORT INFORMATION
  Report Type: 
  Country: None (occurrence: None)
  Receive Date: 20100420
  Receipt Date: 20100414
  Transmission Date: 20101027
  Serious: Yes (Death)
  Sender: FDA-Public Use
  Company Number: A0855541A

PATIENT
  Age: 70 Year
  Sex: Male

DRUGS (2)
  1. PROMACTA [Suspect]
     Indication: NON-HODGKIN'S LYMPHOMA
     Route: 048
  2. CORTICOSTEROIDS [Concomitant]

REACTIONS (1)
  - DEATH [None]
